FAERS Safety Report 5335148-0 (Version None)
Quarter: 2007Q2

REPORT INFORMATION
  Report Type: 
  Country: None (occurrence: None)
  Receive Date: 20070525
  Receipt Date: 20070522
  Transmission Date: 20071010
  Serious: Yes (Other)
  Sender: FDA-Public Use
  Company Number: GB-MERCK-0612GBR00040

PATIENT
  Sex: Female

DRUGS (2)
  1. HYDROCORTONE [Suspect]
     Route: 061
  2. METHOTREXATE [Suspect]
     Route: 065

REACTIONS (2)
  - EYE INFECTION [None]
  - HYPERSENSITIVITY [None]
